FAERS Safety Report 15082935 (Version 4)
Quarter: 2019Q4

REPORT INFORMATION
  Report Type: Report from Study
  Country: US (occurrence: US)
  Receive Date: 20180628
  Receipt Date: 20191225
  Transmission Date: 20200122
  Serious: No
  Sender: FDA-Public Use
  Company Number: PHEH2018US026445

PATIENT
  Age: 52 Year
  Sex: Female

DRUGS (2)
  1. GILENYA [Suspect]
     Active Substance: FINGOLIMOD HYDROCHLORIDE
     Indication: MULTIPLE SCLEROSIS
     Dosage: 0.5 MG, QD
     Route: 048
     Dates: start: 20180604
  2. GILENYA [Suspect]
     Active Substance: FINGOLIMOD HYDROCHLORIDE
     Indication: RELAPSING-REMITTING MULTIPLE SCLEROSIS
     Dosage: 0.5 MG, QD
     Route: 048
     Dates: start: 20180613

REACTIONS (7)
  - Drug ineffective [Unknown]
  - Memory impairment [Unknown]
  - Speech disorder [Unknown]
  - Nausea [Not Recovered/Not Resolved]
  - Vision blurred [Unknown]
  - Movement disorder [Unknown]
  - Joint lock [Not Recovered/Not Resolved]

NARRATIVE: CASE EVENT DATE: 20180605
